FAERS Safety Report 4323834-0 (Version None)
Quarter: 2004Q1

REPORT INFORMATION
  Report Type: 
  Country: None (occurrence: None)
  Receive Date: 20040323
  Receipt Date: 20040309
  Transmission Date: 20041129
  Serious: Yes (Hospitalization)
  Sender: FDA-Public Use
  Company Number: AU-JNJFOC-20040303550

PATIENT
  Age: 37 Year
  Sex: Female

DRUGS (5)
  1. TRAMAL (TRAMADOL HYDROCHLORIDE) UNSPECIFIED [Suspect]
     Indication: BACK PAIN
     Dosage: 100 MG, IN 1 DAY
     Dates: start: 20030516, end: 20030516
  2. MESASAL (MESALAZINE) [Concomitant]
  3. BRAHMI (HERBAL PREPARATION) [Concomitant]
  4. GINGKO (GINKGO BILOBA) [Concomitant]
  5. MARVELON (DESOGESGTERL/ETHINYL ESTRADIOL) [Concomitant]

REACTIONS (5)
  - DYSKINESIA [None]
  - INSOMNIA [None]
  - NAUSEA [None]
  - RESTLESSNESS [None]
  - TONGUE BITING [None]
